FAERS Safety Report 4635759-1 (Version None)
Quarter: 2005Q2

REPORT INFORMATION
  Report Type: 
  Country: None (occurrence: None)
  Receive Date: 20050413
  Receipt Date: 20050331
  Transmission Date: 20051028
  Serious: Yes (Death)
  Sender: FDA-Public Use
  Company Number: MK200504-0034-1

PATIENT
  Age: 65 Year
  Sex: Male
  Weight: 31.7518 kg

DRUGS (2)
  1. MD-76R [Suspect]
     Indication: ANGIOPLASTY
     Dosage: 100 ML, ONE TIME
     Dates: start: 20050324, end: 20050324
  2. HEPARIN [Concomitant]

REACTIONS (5)
  - CARDIO-RESPIRATORY ARREST [None]
  - CHILLS [None]
  - HEADACHE [None]
  - HYPOTENSION [None]
  - PROCEDURAL COMPLICATION [None]
